FAERS Safety Report 6443331-6 (Version None)
Quarter: 2009Q4

REPORT INFORMATION
  Report Type: 
  Country: None (occurrence: None)
  Receive Date: 20091112
  Receipt Date: 20091103
  Transmission Date: 20100525
  Serious: Yes (Death, Hospitalization)
  Sender: FDA-Public Use
  Company Number: WAES 0910USA00126

PATIENT
  Age: 72 Year
  Sex: Male
  Weight: 71.6683 kg

DRUGS (16)
  1. DECADRON [Suspect]
     Indication: BRAIN OEDEMA
     Dosage: 10 MG/1X/IV; 4 MG/Q6H/PO; 4 MG/Q8H/PO; 4 MG/DAILY/PO
     Route: 042
     Dates: start: 20090819, end: 20090819
  2. DECADRON [Suspect]
     Indication: BRAIN OEDEMA
     Dosage: 10 MG/1X/IV; 4 MG/Q6H/PO; 4 MG/Q8H/PO; 4 MG/DAILY/PO
     Route: 042
     Dates: start: 20090821, end: 20090904
  3. DECADRON [Suspect]
     Indication: BRAIN OEDEMA
     Dosage: 10 MG/1X/IV; 4 MG/Q6H/PO; 4 MG/Q8H/PO; 4 MG/DAILY/PO
     Route: 042
     Dates: start: 20090904, end: 20090914
  4. DECADRON [Suspect]
     Indication: BRAIN OEDEMA
     Dosage: 10 MG/1X/IV; 4 MG/Q6H/PO; 4 MG/Q8H/PO; 4 MG/DAILY/PO
     Route: 042
     Dates: start: 20090914
  5. BLINDED THERAPY UNK [Suspect]
     Indication: COGNITIVE DISORDER
     Dosage: PO
     Route: 048
     Dates: start: 20090827, end: 20090914
  6. THERAPEUTIC RADIOPHARMACEUTICAL (UNSPECIFIED) UNK [Suspect]
     Dates: start: 20090825, end: 20090914
  7. COMBIVENT [Concomitant]
  8. DIFLUCAN [Concomitant]
  9. ZOCOR [Concomitant]
  10. ASPIRIN [Concomitant]
  11. GLIPIZIDE [Concomitant]
  12. LISINOPRIL [Concomitant]
  13. METOPROLOL [Concomitant]
  14. NIACIN [Concomitant]
  15. OMEPRAZOLE [Concomitant]
  16. PROCHLORPERAZINE [Concomitant]

REACTIONS (11)
  - ACUTE MYOCARDIAL INFARCTION [None]
  - ATRIAL FLUTTER [None]
  - BLOOD UREA INCREASED [None]
  - CONFUSIONAL STATE [None]
  - DISEASE PROGRESSION [None]
  - GENERAL PHYSICAL HEALTH DETERIORATION [None]
  - HYPERGLYCAEMIA [None]
  - HYPOTENSION [None]
  - LUNG CANCER METASTATIC [None]
  - MUSCULAR WEAKNESS [None]
  - TACHYCARDIA [None]
